FAERS Safety Report 11303328 (Version 1)
Quarter: 2015Q3

REPORT INFORMATION
  Report Type: Spontaneous
  Country: US (occurrence: US)
  Receive Date: 20150723
  Receipt Date: 20150723
  Transmission Date: 20151125
  Serious: No
  Sender: FDA-Public Use
  Company Number: US-JNJFOC-20150518385

PATIENT
  Age: 85 Year
  Sex: Female
  Weight: 74.84 kg

DRUGS (2)
  1. ZYRTEC [Suspect]
     Active Substance: CETIRIZINE HYDROCHLORIDE
     Indication: RASH PRURITIC
     Route: 048
     Dates: start: 20150525, end: 20150525
  2. ZYRTEC [Suspect]
     Active Substance: CETIRIZINE HYDROCHLORIDE
     Indication: FOOD ALLERGY
     Route: 048
     Dates: start: 20150525, end: 20150525

REACTIONS (4)
  - Off label use [Not Recovered/Not Resolved]
  - Overdose [Unknown]
  - Therapeutic response unexpected [Unknown]
  - Rash [Not Recovered/Not Resolved]

NARRATIVE: CASE EVENT DATE: 20150526
